FAERS Safety Report 14860748 (Version 1)
Quarter: 2018Q2

REPORT INFORMATION
  Report Type: Spontaneous
  Country: US (occurrence: US)
  Receive Date: 20180423
  Receipt Date: 20180423
  Transmission Date: 20180711
  Serious: Yes (Other)
  Sender: FDA-Public Use
  Company Number: None

PATIENT
  Age: 58 Year
  Sex: Female
  Weight: 87.3 kg

DRUGS (1)
  1. EZETIMIBE. [Suspect]
     Active Substance: EZETIMIBE
     Indication: BLOOD CHOLESTEROL INCREASED
     Dosage: ?          QUANTITY:90 TABLET(S);?
     Route: 048
     Dates: start: 20180322, end: 20180421

REACTIONS (13)
  - Meniscus injury [None]
  - Sinusitis [None]
  - Muscular weakness [None]
  - Pain in extremity [None]
  - Muscle spasms [None]
  - Back pain [None]
  - Myopathy [None]
  - Headache [None]
  - Hepatic pain [None]
  - Faeces discoloured [None]
  - Arthritis [None]
  - Toothache [None]
  - Renal pain [None]

NARRATIVE: CASE EVENT DATE: 20180406
